FAERS Safety Report 6734937-5 (Version None)
Quarter: 2010Q2

REPORT INFORMATION
  Report Type: 
  Country: None (occurrence: None)
  Receive Date: 20100521
  Receipt Date: 20100517
  Transmission Date: 20101027
  Serious: Yes (Life-Threatening, Hospitalization, Disabling, Other)
  Sender: FDA-Public Use
  Company Number: US-BAYER-200714849NA

PATIENT
  Age: 23 Year
  Sex: Female
  Weight: 60 kg

DRUGS (2)
  1. YAZ [Suspect]
     Indication: ORAL CONTRACEPTION
     Dosage: 1 TABLET
     Route: 048
     Dates: start: 20070701, end: 20070912
  2. ALCOHOL [Suspect]

REACTIONS (9)
  - AMENORRHOEA [None]
  - ANAEMIA [None]
  - ANOXIC ENCEPHALOPATHY [None]
  - ARRHYTHMIA [None]
  - BLOOD POTASSIUM DECREASED [None]
  - CARDIAC ARREST [None]
  - CONVULSION [None]
  - PNEUMONIA ASPIRATION [None]
  - VENTRICULAR FIBRILLATION [None]
